FAERS Safety Report 20309049 (Version 1)
Quarter: 2022Q1

REPORT INFORMATION
  Report Type: Spontaneous
  Country: GB (occurrence: None)
  Receive Date: 20220107
  Receipt Date: 20220107
  Transmission Date: 20220423
  Serious: Yes (Other)
  Sender: FDA-Public Use
  Company Number: GB-Hikma Pharmaceuticals-GB-H14001-21-05698

PATIENT

DRUGS (2)
  1. DOPAMINE [Suspect]
     Active Substance: DOPAMINE HYDROCHLORIDE
     Indication: Blood pressure management
     Dosage: UNKNOWN
     Route: 065
  2. NOREPINEPHRINE [Suspect]
     Active Substance: NOREPINEPHRINE
     Indication: Blood pressure management
     Dosage: UNKNOWN
     Route: 065

REACTIONS (2)
  - Gangrene [Unknown]
  - Limb amputation [Recovered/Resolved]
